FAERS Safety Report 9140749 (Version 1)
Quarter: 2013Q1

REPORT INFORMATION
  Report Type: Spontaneous
  Country: US (occurrence: None)
  Receive Date: 20130227
  Receipt Date: 20130227
  Transmission Date: 20140127
  Serious: Yes (Death)
  Sender: FDA-Public Use
  Company Number: SYM-2013-00390

PATIENT
  Age: 28 Year
  Sex: Female

DRUGS (4)
  1. LORAZEPAM (LORAZEPAM) (LORAZEPAM) [Suspect]
     Indication: PRODUCT USED FOR UNKNOWN INDICATION
     Dosage: ORAL
     Route: 048
  2. AMPHETAMINE (AMFETAMINE) (AMFETAMINE) [Suspect]
     Dosage: ORAL
     Route: 048
  3. COCAINE (COCAINE) (COCAINE) [Suspect]
     Dosage: ORAL
     Route: 048
  4. BENZODIAZEPINE (BENZODIAZEPINE DERIVATIVES) (NULL) [Suspect]
     Dosage: ORAL
     Route: 048

REACTIONS (1)
  - Poisoning [None]
